FAERS Safety Report 6469558-5 (Version None)
Quarter: 2009Q4

REPORT INFORMATION
  Report Type: 
  Country: None (occurrence: None)
  Receive Date: 20091202
  Receipt Date: 20091202
  Transmission Date: 20100525
  Serious: Yes (Hospitalization)
  Sender: FDA-Public Use
  Company Number: None

PATIENT
  Sex: Male
  Weight: 59.9 kg

DRUGS (1)
  1. CISPLATIN 170 MG [Suspect]
     Dosage: 170 MG

REACTIONS (7)
  - CATHETER SITE INFECTION [None]
  - CATHETER SITE PAIN [None]
  - DEHYDRATION [None]
  - DERMATITIS [None]
  - FEBRILE NEUTROPENIA [None]
  - GENERAL PHYSICAL HEALTH DETERIORATION [None]
  - STOMATITIS [None]
